FAERS Safety Report 9437317 (Version 2)
Quarter: 2013Q3

REPORT INFORMATION
  Report Type: Spontaneous
  Country: NL (occurrence: NL)
  Receive Date: 20130802
  Receipt Date: 20130904
  Transmission Date: 20140515
  Serious: Yes (Death)
  Sender: FDA-Public Use
  Company Number: NL-CELGENEUS-114-21880-13072176

PATIENT
  Age: 77 Year
  Sex: Male

DRUGS (6)
  1. REVLIMID [Suspect]
     Indication: PLASMA CELL MYELOMA
     Dosage: 15 MILLIGRAM
     Route: 048
     Dates: start: 201011, end: 201302
  2. ENDOXAN [Suspect]
     Indication: PLASMA CELL MYELOMA
     Dosage: 50 MILLIGRAM
     Route: 065
     Dates: start: 201011, end: 201302
  3. PREDNISONE [Suspect]
     Indication: PLASMA CELL MYELOMA
     Dosage: 10 MILLIGRAM
     Route: 065
     Dates: start: 201011, end: 201302
  4. LISINOPRIL [Concomitant]
     Indication: HYPERTENSION
     Route: 065
     Dates: start: 2006, end: 20130415
  5. RANITIDINE [Concomitant]
     Indication: PROPHYLAXIS
     Dosage: 300 MILLIGRAM
     Route: 065
     Dates: start: 2006, end: 20130415
  6. PREGABALIN [Concomitant]
     Indication: NEUROPATHY PERIPHERAL
     Dosage: 150 MILLIGRAM
     Route: 065
     Dates: start: 201211, end: 20130415

REACTIONS (1)
  - Progressive multifocal leukoencephalopathy [Fatal]
